FAERS Safety Report 8559222-0 (Version None)
Quarter: 2012Q3

REPORT INFORMATION
  Report Type: 
  Country: None (occurrence: None)
  Receive Date: 20120720
  Receipt Date: 20120706
  Transmission Date: 20120928
  Serious: Yes (Death)
  Sender: FDA-Public Use
  Company Number: EU-2012-10200

PATIENT
  Age: 62 Year
  Sex: Male

DRUGS (1)
  1. SAMSCA [Suspect]
     Dosage: 15 MG MILLIGRAM(S), DAILY DOSE, 30 MG MILLIGRAM(S), DAILY DOSE

REACTIONS (2)
  - HYPERNATRAEMIA [None]
  - PNEUMONIA [None]
